FAERS Safety Report 5126240-4 (Version None)
Quarter: 2006Q4

REPORT INFORMATION
  Report Type: 
  Country: None (occurrence: None)
  Receive Date: 20061012
  Receipt Date: 20060829
  Transmission Date: 20070319
  Serious: Yes (Hospitalization)
  Sender: FDA-Public Use
  Company Number: JP-ABBOTT-06P-087-0342806-00

PATIENT
  Sex: Male
  Weight: 12.5 kg

DRUGS (2)
  1. KLARICID DRY SYRUP [Suspect]
     Indication: DRUG USE FOR UNKNOWN INDICATION
     Route: 048
     Dates: start: 20050827, end: 20060827
  2. KLARICID DRY SYRUP [Suspect]
     Indication: LOWER RESPIRATORY TRACT INFLAMMATION
     Dates: start: 20060828, end: 20060828

REACTIONS (7)
  - ASTHMA [None]
  - ATELECTASIS [None]
  - CHEST PAIN [None]
  - COUGH [None]
  - INSOMNIA [None]
  - LOWER RESPIRATORY TRACT INFLAMMATION [None]
  - PETIT MAL EPILEPSY [None]
